FAERS Safety Report 6967659-6 (Version None)
Quarter: 2010Q3

REPORT INFORMATION
  Report Type: 
  Country: None (occurrence: None)
  Receive Date: 20100907
  Receipt Date: 20100827
  Transmission Date: 20110219
  Serious: Yes (Other)
  Sender: FDA-Public Use
  Company Number: US-PFIZER INC-2010108576

PATIENT
  Sex: Female
  Weight: 52 kg

DRUGS (2)
  1. ESTRING [Suspect]
     Indication: VULVOVAGINAL DRYNESS
     Dosage: UNK
     Dates: start: 20100701
  2. SIMVASTATIN [Concomitant]
     Dosage: UNK

REACTIONS (3)
  - VULVOVAGINAL BURNING SENSATION [None]
  - VULVOVAGINAL MYCOTIC INFECTION [None]
  - VULVOVAGINAL PRURITUS [None]
